FAERS Safety Report 6771943-9 (Version None)
Quarter: 2010Q2

REPORT INFORMATION
  Report Type: 
  Country: None (occurrence: None)
  Receive Date: 20100616
  Receipt Date: 20100614
  Transmission Date: 20101027
  Serious: Yes (Hospitalization)
  Sender: FDA-Public Use
  Company Number: A0864821A

PATIENT
  Age: 47 Year
  Sex: Female

DRUGS (2)
  1. ALLI [Suspect]
     Indication: WEIGHT LOSS DIET
     Route: 048
     Dates: start: 20090801, end: 20100509
  2. ZOLOFT [Concomitant]
     Indication: ANXIETY

REACTIONS (12)
  - ABDOMINAL PAIN [None]
  - BASEDOW'S DISEASE [None]
  - COLONOSCOPY [None]
  - DIARRHOEA [None]
  - ENTERITIS INFECTIOUS [None]
  - ENTEROCOLITIS [None]
  - PAIN [None]
  - PYREXIA [None]
  - STEATORRHOEA [None]
  - THYROID DISORDER [None]
  - TREATMENT NONCOMPLIANCE [None]
  - VITAMIN B12 DEFICIENCY [None]
